FAERS Safety Report 8365920-4 (Version None)
Quarter: 2012Q2

REPORT INFORMATION
  Report Type: 
  Country: None (occurrence: None)
  Receive Date: 20120515
  Receipt Date: 20120515
  Transmission Date: 20120825
  Serious: Yes (Death)
  Sender: FDA-Public Use
  Company Number: None

PATIENT
  Sex: Male
  Weight: 78.9 kg

DRUGS (2)
  1. IPILIMUMAB -YERVOY- 200MG/40ML BRISTOL-MYERS SQUIBB [Suspect]
     Indication: METASTATIC MALIGNANT MELANOMA
     Dosage: 10 MG PER KG EVERY 3 WEEKS IV DRIP
     Route: 041
     Dates: start: 20120106, end: 20120127
  2. DACARBAZINE [Concomitant]

REACTIONS (9)
  - METASTATIC MALIGNANT MELANOMA [None]
  - PAIN [None]
  - HEPATOTOXICITY [None]
  - RESPIRATORY FAILURE [None]
  - CONDITION AGGRAVATED [None]
  - CELLULITIS [None]
  - NO THERAPEUTIC RESPONSE [None]
  - NEOPLASM PROGRESSION [None]
  - HYPOTENSION [None]
